FAERS Safety Report 15532941 (Version 1)
Quarter: 2018Q4

REPORT INFORMATION
  Report Type: Spontaneous
  Country: CN (occurrence: CN)
  Receive Date: 20181019
  Receipt Date: 20181019
  Transmission Date: 20190205
  Serious: Yes (Hospitalization, Other)
  Sender: FDA-Public Use
  Company Number: IND-CN-009507513-1810CHN006455

PATIENT
  Age: 52 Year
  Sex: Female
  Weight: 46 kg

DRUGS (3)
  1. MYONAL (EPERISONE HYDROCHLORIDE) [Suspect]
     Active Substance: EPERISONE HYDROCHLORIDE
     Indication: MUSCLE RELAXANT THERAPY
     Dosage: 50 MG, TID
     Route: 048
     Dates: start: 20180806, end: 20180814
  2. ARCOXIA [Suspect]
     Active Substance: ETORICOXIB
     Indication: INFLAMMATORY PAIN
     Dosage: 60 MG, QD
     Route: 048
     Dates: start: 20180806, end: 20180814
  3. ZHENGQING FENGTONGNING [Suspect]
     Active Substance: HERBALS
     Indication: VASODILATATION
     Dosage: 120 MG, BID
     Route: 048
     Dates: start: 20180806, end: 20180814

REACTIONS (5)
  - Pruritus [Recovering/Resolving]
  - Chest discomfort [Recovering/Resolving]
  - Pyrexia [Recovering/Resolving]
  - Rash [Recovering/Resolving]
  - Palpitations [Recovering/Resolving]

NARRATIVE: CASE EVENT DATE: 20180813
